FAERS Safety Report 18013841 (Version 1)
Quarter: 2020Q3

REPORT INFORMATION
  Report Type: Spontaneous
  Country: US (occurrence: US)
  Receive Date: 20200713
  Receipt Date: 20200713
  Transmission Date: 20201103
  Serious: Yes (Other)
  Sender: FDA-Public Use
  Company Number: US-FRESENIUS KABI-FK202007007

PATIENT
  Age: 69 Year
  Sex: Male

DRUGS (2)
  1. MANNITOL (MANUFACTURER UNKNOWN) [Suspect]
     Active Substance: MANNITOL
     Indication: DRUG THERAPY
     Dosage: UNKNOWN
     Route: 013
  2. METHOTREXATE (MANUFACTURER UNKNOWN) [Suspect]
     Active Substance: METHOTREXATE
     Indication: DIFFUSE LARGE B-CELL LYMPHOMA
     Dosage: UNKNOWN
     Route: 013

REACTIONS (3)
  - Choroidal neovascularisation [Unknown]
  - Maculopathy [Unknown]
  - Retinal haemorrhage [Unknown]
